FAERS Safety Report 8064067-4 (Version None)
Quarter: 2012Q1

REPORT INFORMATION
  Report Type: 
  Country: None (occurrence: None)
  Receive Date: 20120123
  Receipt Date: 20120120
  Transmission Date: 20120608
  Serious: Yes (Death, Hospitalization)
  Sender: FDA-Public Use
  Company Number: US-GLAXOSMITHKLINE-A0862718A

PATIENT
  Age: 60 Year
  Sex: Male
  Weight: 170.9 kg

DRUGS (13)
  1. AVANDIA [Suspect]
     Indication: DIABETES MELLITUS
     Dosage: 8MG PER DAY
     Route: 048
     Dates: start: 20030913, end: 20090415
  2. RANITIDINE [Concomitant]
  3. VALSARTAN [Concomitant]
  4. AMLODIPINE [Concomitant]
  5. EZETIMIBE/SIMVASTATIN [Concomitant]
  6. CARBIDOPA AND LEVODOPA [Concomitant]
  7. SERTRALINE HYDROCHLORIDE [Concomitant]
  8. PRIMIDONE [Concomitant]
  9. LEVOTHYROXINE SODIUM [Concomitant]
  10. ALBUTEROL [Concomitant]
  11. METFORMIN HYDROCHLORIDE [Concomitant]
  12. INSULIN [Concomitant]
  13. GABAPENTIN [Concomitant]

REACTIONS (5)
  - CARDIAC FAILURE CONGESTIVE [None]
  - CARDIAC ARREST [None]
  - MYOCARDIAL INFARCTION [None]
  - RESPIRATORY ARREST [None]
  - CEREBRAL ISCHAEMIA [None]
